FAERS Safety Report 5118554-9 (Version None)
Quarter: 2006Q3

REPORT INFORMATION
  Report Type: 
  Country: None (occurrence: None)
  Receive Date: 20060927
  Receipt Date: 20060914
  Transmission Date: 20061208
  Serious: Yes (Hospitalization)
  Sender: FDA-Public Use
  Company Number: 2005135728

PATIENT
  Age: 70 Year
  Sex: Female
  Weight: 59 kg

DRUGS (6)
  1. SUTENT [Suspect]
     Indication: RENAL CANCER METASTATIC
     Dosage: 50 MG (50 MG, DAILY FOR 4 WEEKS OF A 6 WEEKS CYCLE), ORAL
     Route: 048
     Dates: start: 20050815, end: 20050911
  2. METOPROLOL (METOPROLOL) [Concomitant]
  3. AMLODIPINE [Concomitant]
  4. BENAZEPRIL (BENAZEPRIL) [Concomitant]
  5. ALLOPURINOL [Concomitant]
  6. GEMFIBROZIL [Concomitant]

REACTIONS (9)
  - ASTHENIA [None]
  - CHOLECYSTITIS [None]
  - CONSTIPATION [None]
  - GASTRIC ULCER HAEMORRHAGE [None]
  - HAEMOGLOBIN DECREASED [None]
  - MUSCULAR WEAKNESS [None]
  - PERITONITIS [None]
  - THROMBOCYTOPENIA [None]
  - VERTIGO [None]
